FAERS Safety Report 7129283-4 (Version None)
Quarter: 2010Q4

REPORT INFORMATION
  Report Type: 
  Country: None (occurrence: None)
  Receive Date: 20101130
  Receipt Date: 20101124
  Transmission Date: 20110411
  Serious: Yes (Hospitalization)
  Sender: FDA-Public Use
  Company Number: US-ROXANE LABORATORIES, INC.-2010-RO-01546RO

PATIENT
  Age: 26 Year
  Sex: Female

DRUGS (3)
  1. LIDOCAINE [Suspect]
     Indication: ANAESTHESIA
     Dosage: 40 ML
  2. FENTANYL CITRATE [Suspect]
     Indication: ANAESTHESIA
     Dosage: 100 MCG
     Route: 042
  3. PROPOFOL [Suspect]
     Indication: ANAESTHESIA
     Dosage: 120 MG
     Route: 042

REACTIONS (3)
  - CONVULSION [None]
  - DRUG DISPENSING ERROR [None]
  - DRUG TOXICITY [None]
